FAERS Safety Report 5581681-6 (Version None)
Quarter: 2008Q1

REPORT INFORMATION
  Report Type: 
  Country: None (occurrence: None)
  Receive Date: 20080104
  Receipt Date: 20071226
  Transmission Date: 20080703
  Serious: Yes (Hospitalization)
  Sender: FDA-Public Use
  Company Number: US-ELI_LILLY_AND_COMPANY-US200712004749

PATIENT
  Age: 52 Year
  Sex: Female

DRUGS (12)
  1. CYMBALTA [Suspect]
     Indication: DEPRESSION
     Dosage: 30 MG, DAILY (1/D)
     Dates: start: 20061101
  2. CYMBALTA [Suspect]
     Dosage: 40 MG, DAILY (1/D)
     Dates: end: 20070301
  3. CYMBALTA [Suspect]
     Dosage: 60 MG, DAILY (1/D)
     Dates: start: 20070301
  4. NEURONTIN [Concomitant]
  5. FENTANYL [Concomitant]
  6. DILAUDID [Concomitant]
  7. INSULIN [Concomitant]
  8. NIASPAN [Concomitant]
  9. OMACOR [Concomitant]
  10. RELPAX [Concomitant]
  11. SEROQUEL [Concomitant]
  12. CRESTOR [Concomitant]

REACTIONS (1)
  - INTESTINAL OBSTRUCTION [None]
